FAERS Safety Report 11446621 (Version 1)
Quarter: 2015Q3

REPORT INFORMATION
  Report Type: Spontaneous
  Country: US (occurrence: US)
  Receive Date: 20150831
  Receipt Date: 20150831
  Transmission Date: 20151125
  Serious: No
  Sender: FDA-Public Use
  Company Number: US-ELI_LILLY_AND_COMPANY-US200809001857

PATIENT
  Sex: Female
  Weight: 56.24 kg

DRUGS (8)
  1. SYNTHROID [Concomitant]
     Active Substance: LEVOTHYROXINE SODIUM
     Dates: start: 2002
  2. CAFFEINE. [Concomitant]
     Active Substance: CAFFEINE
  3. ASPIRIN. [Concomitant]
     Active Substance: ASPIRIN
     Dates: start: 2003
  4. CYMBALTA [Suspect]
     Active Substance: DULOXETINE HYDROCHLORIDE
     Indication: DEPRESSION
     Dosage: 30 MG, DAILY (1/D)
     Dates: start: 20080528, end: 20080528
  5. PROVIGIL [Concomitant]
     Active Substance: MODAFINIL
     Indication: MULTIPLE SCLEROSIS
     Dosage: 200 MG, DAILY (1/D)
     Dates: start: 2003
  6. MULTIVITAMIN [Concomitant]
     Active Substance: VITAMINS
  7. NORVASC [Concomitant]
     Active Substance: AMLODIPINE BESYLATE
     Dates: start: 2003
  8. CLONAZEPAM. [Concomitant]
     Active Substance: CLONAZEPAM
     Dates: start: 2006

REACTIONS (4)
  - Chills [Unknown]
  - Depression [Unknown]
  - Dystonia [Unknown]
  - Anxiety [Unknown]
